FAERS Safety Report 10069067 (Version 1)
Quarter: 2014Q2

REPORT INFORMATION
  Report Type: Spontaneous
  Country: US (occurrence: US)
  Receive Date: 20140409
  Receipt Date: 20140409
  Transmission Date: 20141212
  Serious: No
  Sender: FDA-Public Use
  Company Number: US-ASTRAZENECA-2014SE16557

PATIENT
  Age: 74 Year
  Sex: Female
  Weight: 66.7 kg

DRUGS (8)
  1. BRILINTA [Suspect]
     Indication: STENT PLACEMENT
     Route: 048
     Dates: start: 201402
  2. METOPROLOL [Suspect]
     Indication: STENT PLACEMENT
     Route: 065
     Dates: start: 201402
  3. LIPITOR [Concomitant]
     Indication: BLOOD CHOLESTEROL INCREASED
     Dosage: 40 MG. DAILY
  4. ASPIRIN [Concomitant]
     Indication: ANTICOAGULANT THERAPY
     Dosage: 81 MG. DAILY
     Dates: start: 201402
  5. POTASSIUM [Concomitant]
     Indication: BLOOD POTASSIUM DECREASED
     Dosage: 20 MEG DAILY
  6. MULTIVITAMIN WITH VITAMIN D [Concomitant]
     Indication: VITAMIN SUPPLEMENTATION
     Dosage: NOT REPORTED DAILY
  7. AERDS2 [Concomitant]
     Indication: MACULAR DEGENERATION
     Dosage: NOT REPORTED NR
  8. HYDORCHLOROTHIAZINE [Concomitant]
     Indication: DIURETIC THERAPY
     Dosage: 25 MG. DAILY

REACTIONS (2)
  - Visual impairment [Not Recovered/Not Resolved]
  - Scleral disorder [Not Recovered/Not Resolved]
